FAERS Safety Report 9369569 (Version 2)
Quarter: 2013Q3

REPORT INFORMATION
  Report Type: Report from Study
  Country: FR (occurrence: FR)
  Receive Date: 20130626
  Receipt Date: 20130703
  Transmission Date: 20140515
  Serious: Yes (Hospitalization, Other)
  Sender: FDA-Public Use
  Company Number: FR-MILLENNIUM PHARMACEUTICALS, INC.-2013-04985

PATIENT
  Sex: 0

DRUGS (4)
  1. VELCADE [Suspect]
     Indication: MANTLE CELL LYMPHOMA
     Dosage: 3.05 MG, UNK
     Route: 065
     Dates: start: 20130220, end: 20130425
  2. RITUXIMAB [Suspect]
     Indication: MANTLE CELL LYMPHOMA
     Dosage: 750 MG, UNK
     Route: 065
     Dates: start: 20130220, end: 20130425
  3. ARA-C [Suspect]
     Indication: MANTLE CELL LYMPHOMA
     Dosage: 4080 MG, UNK
     Route: 065
     Dates: start: 20130220, end: 20130427
  4. DEXAMETHASONE [Suspect]
     Indication: MANTLE CELL LYMPHOMA
     Dosage: 80 MG, UNK
     Route: 065
     Dates: start: 20130220, end: 20130428

REACTIONS (2)
  - Staphylococcal infection [Recovered/Resolved]
  - Subclavian vein thrombosis [Not Recovered/Not Resolved]
